FAERS Safety Report 10728690 (Version 1)
Quarter: 2015Q1

REPORT INFORMATION
  Report Type: Spontaneous
  Country: US (occurrence: None)
  Receive Date: 20150120
  Receipt Date: 20150120
  Transmission Date: 20150721
  Serious: Yes (Life-Threatening, Hospitalization)
  Sender: FDA-Public Use
  Company Number: None

PATIENT
  Age: 70 Year
  Sex: Male
  Weight: 78.8 kg

DRUGS (1)
  1. CETUXIMAB [Suspect]
     Active Substance: CETUXIMAB
     Indication: SQUAMOUS CELL CARCINOMA
     Route: 042
     Dates: start: 20141213, end: 20141213

REACTIONS (7)
  - Loss of consciousness [None]
  - Body temperature decreased [None]
  - Flushing [None]
  - Pulse absent [None]
  - Respiratory arrest [None]
  - Swelling face [None]
  - Blood pressure decreased [None]

NARRATIVE: CASE EVENT DATE: 20141213
